FAERS Safety Report 17347280 (Version 1)
Quarter: 2020Q1

REPORT INFORMATION
  Report Type: Spontaneous
  Country: EE (occurrence: EE)
  Receive Date: 20200130
  Receipt Date: 20200130
  Transmission Date: 20200409
  Serious: Yes (Other)
  Sender: FDA-Public Use
  Company Number: EE-ROCHE-2535243

PATIENT

DRUGS (1)
  1. ESBRIET [Suspect]
     Active Substance: PIRFENIDONE
     Indication: PRODUCT USED FOR UNKNOWN INDICATION
     Dosage: 4-5 TABLETS PER DAY
     Route: 048

REACTIONS (5)
  - Eyelids pruritus [Unknown]
  - Swelling of eyelid [Unknown]
  - Paraesthesia [Unknown]
  - Visual impairment [Unknown]
  - Blepharitis [Unknown]
